FAERS Safety Report 14927037 (Version 1)
Quarter: 2018Q2

REPORT INFORMATION
  Report Type: Spontaneous
  Country: DE (occurrence: DE)
  Receive Date: 20180523
  Receipt Date: 20180523
  Transmission Date: 20180711
  Serious: Yes (Congenital Anomaly, Other)
  Sender: FDA-Public Use
  Company Number: DE-ALKEM LABORATORIES LIMITED-DE-ALKEM-2018-03271

PATIENT
  Age: 18 Year
  Sex: Female

DRUGS (4)
  1. MYCOPHENOLATE MOFETIL. [Suspect]
     Active Substance: MYCOPHENOLATE MOFETIL
     Dosage: 750 MG, BID, UNTIL GESTATIONAL WEEK 8 PLUS 2
     Route: 065
  2. AZATHIOPRINE. [Suspect]
     Active Substance: AZATHIOPRINE
     Indication: IMMUNOSUPPRESSANT DRUG THERAPY
     Dosage: 50 MG, BID, AFTER RECOGNITION OF PREGNANCY
     Route: 065
  3. CYCLOPHOSPHAMIDE. [Suspect]
     Active Substance: CYCLOPHOSPHAMIDE
     Indication: IMMUNOSUPPRESSANT DRUG THERAPY
     Dosage: 800 MG, UNK
     Route: 065
  4. MYCOPHENOLATE MOFETIL. [Suspect]
     Active Substance: MYCOPHENOLATE MOFETIL
     Indication: IMMUNOSUPPRESSANT DRUG THERAPY
     Dosage: 250 TO 750 MG TWICE A DAY, BEFORE CONCEPTION
     Route: 065

REACTIONS (8)
  - Heart disease congenital [Unknown]
  - Exposure during pregnancy [Unknown]
  - Cleft lip and palate [Unknown]
  - Acrodysostosis [Unknown]
  - Congenital genitourinary abnormality [Unknown]
  - Limb malformation [Unknown]
  - Gastrointestinal malformation [Unknown]
  - Mandibulofacial dysostosis [Unknown]
